FAERS Safety Report 6432604-9 (Version None)
Quarter: 2009Q4

REPORT INFORMATION
  Report Type: 
  Country: None (occurrence: None)
  Receive Date: 20091109
  Receipt Date: 20091029
  Transmission Date: 20100525
  Serious: Yes (Hospitalization, Disabling, Other)
  Sender: FDA-Public Use
  Company Number: US-ROCHE-401241

PATIENT
  Sex: Male
  Weight: 79.8 kg

DRUGS (5)
  1. ACCUTANE [Suspect]
     Indication: ACNE
     Route: 048
     Dates: start: 20000608, end: 20000701
  2. ACCUTANE [Suspect]
     Route: 048
     Dates: start: 20000701, end: 20001001
  3. AUGMENTIN [Concomitant]
     Route: 048
     Dates: start: 20011014
  4. ZANTAC [Concomitant]
     Indication: DYSPEPSIA
  5. CIPRO [Concomitant]
     Indication: GASTROENTERITIS

REACTIONS (24)
  - CELLULITIS [None]
  - COLITIS [None]
  - CONSTIPATION [None]
  - CROHN'S DISEASE [None]
  - DIARRHOEA [None]
  - DRY EYE [None]
  - DYSPEPSIA [None]
  - DYSURIA [None]
  - EMOTIONAL DISTRESS [None]
  - ENTEROCOLONIC FISTULA [None]
  - EPISTAXIS [None]
  - GASTROINTESTINAL DISORDER [None]
  - GASTROOESOPHAGEAL REFLUX DISEASE [None]
  - HAEMATURIA [None]
  - HAEMORRHOIDS [None]
  - INFLAMMATORY BOWEL DISEASE [None]
  - INTESTINAL HAEMORRHAGE [None]
  - LIP DRY [None]
  - MULTI-ORGAN DISORDER [None]
  - NEPHROLITHIASIS [None]
  - PELVIC ABSCESS [None]
  - PYREXIA [None]
  - RECTAL ABSCESS [None]
  - RECTAL HAEMORRHAGE [None]
